FAERS Safety Report 8966216 (Version 1)
Quarter: 2012Q4

REPORT INFORMATION
  Report Type: 
  Country: US (occurrence: US)
  Receive Date: 20121217
  Receipt Date: 20121217
  Transmission Date: 20130627
  Serious: Yes (Other)
  Sender: FDA-Public Use
  Company Number: US-009507513-1212USA004962

PATIENT
  Age: 62 Year
  Sex: Male

DRUGS (3)
  1. PEGINTRON [Suspect]
     Indication: HEPATITIS C
     Dosage: Redipen
     Dates: start: 20110107, end: 20120916
  2. RIBAVIRIN [Suspect]
     Indication: HEPATITIS C
     Dosage: UNK
     Dates: start: 20120107, end: 20120916
  3. VICTRELIS [Suspect]
     Indication: HEPATITIS C
     Dosage: UNK
     Dates: start: 20120204, end: 20120916

REACTIONS (3)
  - Hepatic cancer [Unknown]
  - Renal cancer [Unknown]
  - Lymphoma [Unknown]
